FAERS Safety Report 5520113-0 (Version None)
Quarter: 2007Q4

REPORT INFORMATION
  Report Type: 
  Country: None (occurrence: None)
  Receive Date: 20071116
  Receipt Date: 20071108
  Transmission Date: 20080405
  Serious: Yes (Hospitalization)
  Sender: FDA-Public Use
  Company Number: DE-ABBOTT-07P-062-0420171-00

PATIENT
  Sex: Female

DRUGS (8)
  1. HUMIRA [Suspect]
     Indication: RHEUMATOID ARTHRITIS
     Route: 058
     Dates: start: 20070201, end: 20070801
  2. LEVOTHYROXINE SODIUM [Concomitant]
     Indication: GOITRE
     Route: 048
  3. HYDROCHLOROTHIAZIDE [Concomitant]
     Indication: HYPERTONIA
     Route: 048
  4. RAMIPRIL [Concomitant]
     Indication: HYPERTONIA
     Route: 048
  5. LEKOVIT CA [Concomitant]
     Indication: OSTEOPOROSIS
     Route: 048
  6. CORTISONE ACETATE [Concomitant]
     Indication: STEROID THERAPY
     Dosage: 1 / 1 / 1/2
  7. MACROLIDES [Concomitant]
     Indication: BRONCHITIS CHRONIC
     Route: 048
  8. MACROLIDES [Concomitant]
     Indication: BRONCHITIS

REACTIONS (4)
  - BRONCHITIS [None]
  - LUNG NEOPLASM [None]
  - MUSCULOSKELETAL STIFFNESS [None]
  - PNEUMONIA [None]
